FAERS Safety Report 15986690 (Version 2)
Quarter: 2019Q1

REPORT INFORMATION
  Report Type: Report from Study
  Country: US (occurrence: US)
  Receive Date: 20190220
  Receipt Date: 20190301
  Transmission Date: 20190418
  Serious: Yes (Hospitalization)
  Sender: FDA-Public Use
  Company Number: US-ACTELION-A-NJ2018-184292

PATIENT
  Age: 69 Year
  Sex: Female
  Weight: 51.25 kg

DRUGS (4)
  1. UPTRAVI [Suspect]
     Active Substance: SELEXIPAG
     Dosage: 600 MCG, BID
     Route: 048
  2. UPTRAVI [Suspect]
     Active Substance: SELEXIPAG
     Dosage: 400 MCG, BID
     Route: 048
  3. ADCIRCA [Concomitant]
     Active Substance: TADALAFIL
  4. UPTRAVI [Suspect]
     Active Substance: SELEXIPAG
     Indication: PULMONARY ARTERIAL HYPERTENSION
     Dosage: 200 MCG, BID
     Route: 048
     Dates: start: 20181214

REACTIONS (9)
  - Weight increased [Unknown]
  - Fatigue [Unknown]
  - Fluid retention [Unknown]
  - Asthenia [Unknown]
  - Generalised oedema [Unknown]
  - General physical condition abnormal [Unknown]
  - Pain in extremity [Unknown]
  - Malaise [Unknown]
  - Myalgia [Unknown]

NARRATIVE: CASE EVENT DATE: 201812
